FAERS Safety Report 4642408-5 (Version None)
Quarter: 2005Q2

REPORT INFORMATION
  Report Type: 
  Country: None (occurrence: None)
  Receive Date: 20050422
  Receipt Date: 20041206
  Transmission Date: 20051028
  Serious: Yes (Hospitalization)
  Sender: FDA-Public Use
  Company Number: FR-BRISTOL-MYERS SQUIBB COMPANY-12786463

PATIENT
  Age: 75 Year
  Sex: Female

DRUGS (11)
  1. APROVEL [Suspect]
     Indication: HYPERTENSION
     Route: 048
     Dates: end: 20040812
  2. LOXAPAC [Suspect]
     Indication: HYPERTENSION
     Route: 048
     Dates: end: 20040812
  3. AMLOR [Concomitant]
  4. ATHYMIL [Concomitant]
  5. IMPORTAL [Concomitant]
     Dates: end: 20040812
  6. LEVOTHYROX [Concomitant]
     Dates: end: 20040812
  7. LUBENTYL [Concomitant]
     Dates: end: 20040812
  8. LYSANXIA [Concomitant]
  9. METEOSPASMYL [Concomitant]
     Dates: end: 20040812
  10. PROPOFAN [Concomitant]
     Dates: end: 20040812
  11. STILNOX [Concomitant]

REACTIONS (1)
  - HYPONATRAEMIA [None]
